FAERS Safety Report 6379066-8 (Version None)
Quarter: 2009Q3

REPORT INFORMATION
  Report Type: 
  Country: None (occurrence: None)
  Receive Date: 20090928
  Receipt Date: 20090925
  Transmission Date: 20100115
  Serious: Yes (Hospitalization)
  Sender: FDA-Public Use
  Company Number: US-ROXANE LABORATORIES, INC.-2009-RO-00779RO

PATIENT
  Sex: Male

DRUGS (4)
  1. PROPRANOLOL [Suspect]
     Indication: FALLOT'S TETRALOGY
     Dosage: 4.5 ML
     Route: 048
     Dates: start: 20090301
  2. FLOXIN OTIC [Concomitant]
  3. BACTRIM [Concomitant]
  4. CETIRIZINE HCL [Concomitant]
     Indication: HYPERSENSITIVITY

REACTIONS (3)
  - HYPOGLYCAEMIA [None]
  - OVERDOSE [None]
  - PRODUCT QUALITY ISSUE [None]
